FAERS Safety Report 13413158 (Version 2)
Quarter: 2018Q1

REPORT INFORMATION
  Report Type: Spontaneous
  Country: US (occurrence: US)
  Receive Date: 20170406
  Receipt Date: 20180119
  Transmission Date: 20180508
  Serious: No
  Sender: FDA-Public Use
  Company Number: US-JNJFOC-20170311492

PATIENT
  Age: 9 Year
  Sex: Male

DRUGS (22)
  1. RISPERDAL [Suspect]
     Active Substance: RISPERIDONE
     Indication: TUBEROUS SCLEROSIS COMPLEX
     Dosage: UNSPECIFIED DOSE AND 0.5 MG
     Route: 048
     Dates: start: 20040103, end: 20061121
  2. RISPERDAL [Suspect]
     Active Substance: RISPERIDONE
     Indication: TUBEROUS SCLEROSIS COMPLEX
     Route: 048
     Dates: start: 20031013, end: 20050228
  3. RISPERDAL [Suspect]
     Active Substance: RISPERIDONE
     Indication: TUBEROUS SCLEROSIS COMPLEX
     Route: 048
     Dates: end: 20140420
  4. RISPERDAL [Suspect]
     Active Substance: RISPERIDONE
     Indication: TUBEROUS SCLEROSIS COMPLEX
     Route: 048
     Dates: start: 20031013, end: 20031209
  5. RISPERIDONE. [Suspect]
     Active Substance: RISPERIDONE
     Indication: TUBEROUS SCLEROSIS COMPLEX
     Route: 048
     Dates: start: 20081003
  6. RISPERDAL [Suspect]
     Active Substance: RISPERIDONE
     Indication: ABNORMAL BEHAVIOUR
     Route: 048
     Dates: end: 20140420
  7. RISPERIDONE. [Suspect]
     Active Substance: RISPERIDONE
     Indication: TUBEROUS SCLEROSIS COMPLEX
     Route: 048
     Dates: start: 20031013, end: 20050228
  8. RISPERIDONE. [Suspect]
     Active Substance: RISPERIDONE
     Indication: INTELLECTUAL DISABILITY
     Route: 048
     Dates: start: 20080108
  9. RISPERDAL [Suspect]
     Active Substance: RISPERIDONE
     Indication: INTELLECTUAL DISABILITY
     Dosage: VARYING DOSES INCLUDING UNSPECIFIED DOSE AND 0.5 MG AT DIFFERENT FREQUENCIES
     Route: 048
     Dates: start: 20080108, end: 20110829
  10. RISPERIDONE. [Suspect]
     Active Substance: RISPERIDONE
     Indication: TUBEROUS SCLEROSIS COMPLEX
     Route: 048
     Dates: start: 20120328, end: 20140420
  11. RISPERDAL [Suspect]
     Active Substance: RISPERIDONE
     Indication: TUBEROUS SCLEROSIS COMPLEX
     Dosage: VARYING DOSES INCLUDING UNSPECIFIED DOSE AND 0.5 MG AT DIFFERENT FREQUENCIES
     Route: 048
     Dates: start: 20080108, end: 20110829
  12. RISPERDAL [Suspect]
     Active Substance: RISPERIDONE
     Indication: INTELLECTUAL DISABILITY
     Route: 048
     Dates: end: 20140420
  13. RISPERDAL [Suspect]
     Active Substance: RISPERIDONE
     Indication: INTELLECTUAL DISABILITY
     Route: 048
     Dates: start: 20031013, end: 20050228
  14. RISPERDAL [Suspect]
     Active Substance: RISPERIDONE
     Indication: ABNORMAL BEHAVIOUR
     Dosage: UNSPECIFIED DOSE AND 0.5 MG
     Route: 048
     Dates: start: 20040103, end: 20061121
  15. RISPERDAL [Suspect]
     Active Substance: RISPERIDONE
     Indication: INTELLECTUAL DISABILITY
     Dosage: UNSPECIFIED DOSE AND 0.5 MG
     Route: 048
     Dates: start: 20040103, end: 20061121
  16. RISPERDAL [Suspect]
     Active Substance: RISPERIDONE
     Indication: INTELLECTUAL DISABILITY
     Route: 048
     Dates: start: 20031013, end: 20031209
  17. RISPERIDONE. [Suspect]
     Active Substance: RISPERIDONE
     Indication: TUBEROUS SCLEROSIS COMPLEX
     Route: 048
     Dates: start: 20080108
  18. RISPERIDONE. [Suspect]
     Active Substance: RISPERIDONE
     Indication: INTELLECTUAL DISABILITY
     Route: 048
     Dates: start: 20120328, end: 20140420
  19. RISPERDAL [Suspect]
     Active Substance: RISPERIDONE
     Indication: ABNORMAL BEHAVIOUR
     Dosage: VARYING DOSES INCLUDING UNSPECIFIED DOSE AND 0.5 MG AT DIFFERENT FREQUENCIES
     Route: 048
     Dates: start: 20080108, end: 20110829
  20. RISPERIDONE. [Suspect]
     Active Substance: RISPERIDONE
     Indication: INTELLECTUAL DISABILITY
     Route: 048
     Dates: start: 20031013, end: 20050228
  21. RISPERDAL [Suspect]
     Active Substance: RISPERIDONE
     Indication: ABNORMAL BEHAVIOUR
     Route: 048
     Dates: start: 20031013, end: 20050228
  22. RISPERIDONE. [Suspect]
     Active Substance: RISPERIDONE
     Indication: INTELLECTUAL DISABILITY
     Route: 048
     Dates: start: 20081003

REACTIONS (4)
  - Product use in unapproved indication [Unknown]
  - Off label use [Unknown]
  - Gynaecomastia [Unknown]
  - Emotional disorder [Unknown]

NARRATIVE: CASE EVENT DATE: 20031013
